FAERS Safety Report 4685100-3 (Version None)
Quarter: 2005Q2

REPORT INFORMATION
  Report Type: 
  Country: None (occurrence: None)
  Receive Date: 20050531
  Receipt Date: 20050323
  Transmission Date: 20051028
  Serious: No
  Sender: FDA-Public Use
  Company Number: FABR-11058

PATIENT
  Age: 51 Year
  Sex: Female
  Weight: 59.8748 kg

DRUGS (4)
  1. FABRAZYME [Suspect]
     Indication: FABRY'S DISEASE
     Dosage: 60 MG Q2WKS IV
     Route: 042
     Dates: start: 20050105, end: 20050202
  2. FABRAZYME [Suspect]
     Indication: FABRY'S DISEASE
     Dosage: 10 MG Q2WKS IV
     Route: 042
     Dates: start: 20050323
  3. HYDROXYZINE [Concomitant]
  4. IBUPROFEN [Concomitant]

REACTIONS (3)
  - FLUSHING [None]
  - PRURITUS [None]
  - URTICARIA [None]
